FAERS Safety Report 6773432-4 (Version None)
Quarter: 2010Q2

REPORT INFORMATION
  Report Type: 
  Country: None (occurrence: None)
  Receive Date: 20100616
  Receipt Date: 20100512
  Transmission Date: 20101027
  Serious: No
  Sender: FDA-Public Use
  Company Number: US-ABBOTT-10P-163-0645247-00

PATIENT
  Sex: Female
  Weight: 63.56 kg

DRUGS (2)
  1. TRILIPIX [Suspect]
     Indication: BLOOD CHOLESTEROL INCREASED
     Route: 048
     Dates: start: 20100507
  2. TRILIPIX [Suspect]
     Route: 048
     Dates: start: 20100201, end: 20100301

REACTIONS (2)
  - GLOSSODYNIA [None]
  - ORAL PAIN [None]
